FAERS Safety Report 10214960 (Version 3)
Quarter: 2014Q3

REPORT INFORMATION
  Report Type: Spontaneous
  Country: CH (occurrence: CH)
  Receive Date: 20140603
  Receipt Date: 20140709
  Transmission Date: 20150326
  Serious: Yes (Life-Threatening, Hospitalization, Other)
  Sender: FDA-Public Use
  Company Number: CH-CUBIST PHARMACEUTICAL, INC.-2014CBST000768

PATIENT

DRUGS (7)
  1. IMIPENEM [Concomitant]
     Active Substance: IMIPENEM
     Indication: PRODUCT USED FOR UNKNOWN INDICATION
     Dosage: UNK UNK, UNK
     Route: 065
     Dates: start: 20140505, end: 20140514
  2. CUBICIN [Suspect]
     Active Substance: DAPTOMYCIN
     Indication: STAPHYLOCOCCAL INFECTION
  3. VOLTAREN [Concomitant]
     Active Substance: DICLOFENAC SODIUM
     Indication: PRODUCT USED FOR UNKNOWN INDICATION
     Dosage: UNK UNK, UNK
     Route: 065
     Dates: start: 20140503, end: 20140509
  4. CO AMOXICILLIN [Concomitant]
     Active Substance: AMOXICILLIN
     Indication: PRODUCT USED FOR UNKNOWN INDICATION
     Dosage: UNK UNK, UNK
     Route: 065
     Dates: start: 20140503, end: 20140505
  5. CUBICIN [Suspect]
     Active Substance: DAPTOMYCIN
     Indication: LYMPHADENITIS
     Dosage: 5.4 MG/KG, UNK
     Route: 042
     Dates: start: 20140503, end: 20140506
  6. CUBICIN [Suspect]
     Active Substance: DAPTOMYCIN
     Indication: OFF LABEL USE
  7. CUBICIN [Suspect]
     Active Substance: DAPTOMYCIN
     Indication: COMMUNITY ACQUIRED INFECTION
     Dosage: 350 MG, UNK
     Route: 042
     Dates: start: 20140503, end: 20140506

REACTIONS (1)
  - Acute respiratory distress syndrome [Recovering/Resolving]

NARRATIVE: CASE EVENT DATE: 20140505
